FAERS Safety Report 18991720 (Version 1)
Quarter: 2021Q1

REPORT INFORMATION
  Report Type: Report from Study
  Country: US (occurrence: US)
  Receive Date: 20210310
  Receipt Date: 20210310
  Transmission Date: 20210420
  Serious: Yes (Death, Hospitalization)
  Sender: FDA-Public Use
  Company Number: US-BAYER-2021-090989

PATIENT
  Age: 62 Year
  Sex: Male

DRUGS (1)
  1. NEXAVAR [Suspect]
     Active Substance: SORAFENIB
     Indication: HEPATIC CANCER
     Dosage: 400 MG, BID FOR 1 WEEK
     Route: 048
     Dates: start: 20210118, end: 20210126

REACTIONS (7)
  - Death [Fatal]
  - Oropharyngeal pain [Unknown]
  - Blood bilirubin increased [Unknown]
  - Blood potassium increased [Unknown]
  - Dysphagia [Unknown]
  - Blood creatinine increased [Unknown]
  - Hypophagia [Unknown]

NARRATIVE: CASE EVENT DATE: 20210129
